FAERS Safety Report 24134958 (Version 1)
Quarter: 2024Q3

REPORT INFORMATION
  Report Type: Spontaneous
  Country: CA (occurrence: CA)
  Receive Date: 20240725
  Receipt Date: 20240725
  Transmission Date: 20241016
  Serious: Yes (Death, Hospitalization)
  Sender: CELLTRION
  Company Number: CA-CELLTRION INC.-2022CA022615

PATIENT

DRUGS (1)
  1. TRUXIMA [Suspect]
     Active Substance: RITUXIMAB-ABBS
     Indication: Vasculitis
     Dosage: 500 MG, Q6MONTHS
     Route: 042
     Dates: start: 20221123, end: 2024

REACTIONS (5)
  - Death [Fatal]
  - Hospitalisation [Unknown]
  - Illness [Unknown]
  - Intentional dose omission [Unknown]
  - Off label use [Unknown]

NARRATIVE: CASE EVENT DATE: 20240112
